FAERS Safety Report 6773642-6 (Version None)
Quarter: 2010Q2

REPORT INFORMATION
  Report Type: 
  Country: None (occurrence: None)
  Receive Date: 20100614
  Receipt Date: 20100604
  Transmission Date: 20101027
  Serious: Yes (Death, Hospitalization)
  Sender: FDA-Public Use
  Company Number: 597761

PATIENT
  Age: 64 Year
  Sex: Male
  Weight: 76 kg

DRUGS (2)
  1. OXALIPLATIN [Suspect]
     Indication: COLORECTAL CANCER METASTATIC
     Dosage: ONCE EVERY 3 WEEKS INTRAVENOUS
     Route: 042
     Dates: start: 20100126
  2. CAPECITABINE [Suspect]
     Indication: COLORECTAL CANCER
     Dosage: TWICE A DAY, ORAL
     Route: 048
     Dates: start: 20100126, end: 20100130

REACTIONS (8)
  - DIARRHOEA [None]
  - DIHYDROPYRIMIDINE DEHYDROGENASE DEFICIENCY [None]
  - INFECTION [None]
  - MOUTH ULCERATION [None]
  - MUCOSAL INFLAMMATION [None]
  - NEUTROPENIA [None]
  - PERINEAL ULCERATION [None]
  - THROMBOCYTOPENIA [None]
